FAERS Safety Report 18047936 (Version 2)
Quarter: 2020Q3

REPORT INFORMATION
  Report Type: Spontaneous
  Country: QA (occurrence: QA)
  Receive Date: 20200721
  Receipt Date: 20200727
  Transmission Date: 20201103
  Serious: Yes (Hospitalization, Other)
  Sender: FDA-Public Use
  Company Number: QA-ACCORD-191662

PATIENT
  Age: 47 Year
  Sex: Male

DRUGS (4)
  1. ERGOCALCIFEROL. [Concomitant]
     Active Substance: ERGOCALCIFEROL
     Dosage: 50,000U OF VITAMIN D2?(ERGOCALCIFEROL) ORALLY EVERY WEEK.
     Route: 048
  2. ENALAPRIL/ENALAPRIL MALEATE [Concomitant]
     Active Substance: ENALAPRIL MALEATE
     Indication: HYPERTENSION
     Route: 048
  3. AMLODIPINE [Suspect]
     Active Substance: AMLODIPINE BESYLATE
     Indication: HYPERTENSION
     Dosage: 5MG
     Route: 048
  4. ENOXAPARIN/ENOXAPARIN SODIUM [Concomitant]
     Active Substance: ENOXAPARIN\ENOXAPARIN SODIUM
     Route: 058

REACTIONS (1)
  - Drug-induced liver injury [Recovered/Resolved]
